FAERS Safety Report 9073029 (Version 1)
Quarter: 2013Q1

REPORT INFORMATION
  Report Type: Report from Study
  Country: US (occurrence: US)
  Receive Date: 20130129
  Receipt Date: 20130129
  Transmission Date: 20140127
  Serious: No
  Sender: FDA-Public Use
  Company Number: US-ABBOTT-12P-163-0925322-00

PATIENT
  Age: 59 Year
  Sex: Female

DRUGS (11)
  1. HUMIRA 40 MG/0.8 ML PEN [Suspect]
     Indication: COLITIS ULCERATIVE
     Dosage: LOADING DOSE
     Dates: start: 20120328
  2. ASACOL [Concomitant]
     Indication: PRODUCT USED FOR UNKNOWN INDICATION
     Dosage: 800MG 3 TABLETS IN AM, 2 TABLETS IN PM
  3. ALLEGRA [Concomitant]
     Indication: HYPERSENSITIVITY
     Dosage: 180 MG DAILY
  4. FLONASE [Concomitant]
     Indication: HYPERSENSITIVITY
     Dosage: 50 MCG, 2 SPRAYS PER NOSTRIL IN AM
  5. RESTASIS [Concomitant]
     Indication: DRY EYE
     Dosage: 1 DROP IN EACH EYE TWICE DAILY
  6. LEVOTHYROXIN [Concomitant]
     Indication: THYROID DISORDER
     Dosage: 0.50 MG DAILY
  7. AMMONIUM LACTATE [Concomitant]
     Indication: DRY SKIN
     Dosage: APPLIED TO ARMS AND LEGS DAILY
  8. NORITATE [Concomitant]
     Indication: ROSACEA
     Dosage: TO FACE DAILY
  9. BONIVA [Concomitant]
     Indication: OSTEOPOROSIS
     Dosage: MONTHLY
  10. VAGIFEM [Concomitant]
     Indication: VULVOVAGINAL DRYNESS
     Route: 067
  11. MULTIVITAMIN [Concomitant]
     Indication: PRODUCT USED FOR UNKNOWN INDICATION
     Dosage: DAILY

REACTIONS (7)
  - Arthropathy [Not Recovered/Not Resolved]
  - Arthralgia [Not Recovered/Not Resolved]
  - Local swelling [Not Recovered/Not Resolved]
  - Local swelling [Not Recovered/Not Resolved]
  - Joint stiffness [Not Recovered/Not Resolved]
  - Joint stiffness [Not Recovered/Not Resolved]
  - Nausea [Recovered/Resolved]
